FAERS Safety Report 11589992 (Version 1)
Quarter: 2015Q4

REPORT INFORMATION
  Report Type: Spontaneous
  Country: US (occurrence: US)
  Receive Date: 20151002
  Receipt Date: 20151002
  Transmission Date: 20160304
  Serious: Yes (Life-Threatening)
  Sender: FDA-Public Use
  Company Number: US-PFIZER INC-2015315471

PATIENT
  Age: 71 Year
  Sex: Female

DRUGS (3)
  1. FENTANYL. [Concomitant]
     Active Substance: FENTANYL
     Dosage: 75 ?G, UNK
     Route: 042
  2. MIDAZOLAM [Concomitant]
     Active Substance: MIDAZOLAM\MIDAZOLAM HYDROCHLORIDE
     Dosage: 2 MG, UNK
     Route: 042
  3. BENZOCAINE. [Suspect]
     Active Substance: BENZOCAINE
     Indication: ANAESTHESIA
     Dosage: 20% BENZOCAINE GEL IMPREGNATED ON A STICK THAT THE PATIENT WAS ASKED TO TAKE INTO HER MOUTH
     Route: 048

REACTIONS (1)
  - Methaemoglobinaemia [Recovered/Resolved]
